FAERS Safety Report 9348031 (Version 1)
Quarter: 2013Q2

REPORT INFORMATION
  Report Type: Report from Study
  Country: GB (occurrence: GB)
  Receive Date: 20130614
  Receipt Date: 20130614
  Transmission Date: 20140414
  Serious: Yes (Hospitalization)
  Sender: FDA-Public Use
  Company Number: GB-MERCK-1306GBR003733

PATIENT
  Age: 83 Year
  Sex: Female

DRUGS (2)
  1. VORINOSTAT [Suspect]
     Dosage: 20 MG, QD DAY 1-7, 15-21
     Route: 048
     Dates: start: 20121109, end: 20130522
  2. LENALIDOMIDE [Suspect]
     Dosage: 10 MG, QD FOR 21DAYS
     Route: 048
     Dates: start: 20121109, end: 20130522

REACTIONS (1)
  - Infection [Unknown]
